FAERS Safety Report 26008535 (Version 1)
Quarter: 2025Q4

REPORT INFORMATION
  Report Type: Spontaneous
  Country: NZ (occurrence: NZ)
  Receive Date: 20251106
  Receipt Date: 20251106
  Transmission Date: 20260118
  Serious: Yes (Other)
  Sender: SANDOZ
  Company Number: NZ-SANDOZ-SDZ2025NZ082390

PATIENT
  Sex: Female

DRUGS (1)
  1. ESTRADIOL [Suspect]
     Active Substance: ESTRADIOL
     Indication: Product used for unknown indication
     Dosage: ESTRADOT 100 MCG/24H TRANSDERMAL PATCH
     Route: 062

REACTIONS (10)
  - Pelvic floor dysfunction [Unknown]
  - Malaise [Unknown]
  - Brain fog [Unknown]
  - Feeling abnormal [Unknown]
  - Affective disorder [Unknown]
  - Fatigue [Unknown]
  - Anxiety [Unknown]
  - Pain [Unknown]
  - Hot flush [Unknown]
  - Product adhesion issue [Unknown]
